FAERS Safety Report 12576073 (Version 1)
Quarter: 2016Q3

REPORT INFORMATION
  Report Type: Spontaneous
  Country: US (occurrence: US)
  Receive Date: 20160720
  Receipt Date: 20160720
  Transmission Date: 20161109
  Serious: Yes (Other)
  Sender: FDA-Public Use
  Company Number: US-SA-2016SA130122

PATIENT
  Age: 61 Year
  Sex: Male

DRUGS (3)
  1. HUMULIN 70/30 [Concomitant]
     Active Substance: INSULIN HUMAN
  2. SOLOSTAR [Concomitant]
     Active Substance: DEVICE
     Dates: start: 2011
  3. LANTUS SOLOSTAR [Suspect]
     Active Substance: INSULIN GLARGINE
     Indication: DIABETES MELLITUS
     Dosage: DOSE:80 UNIT(S)
     Route: 065
     Dates: start: 2011

REACTIONS (3)
  - Colon cancer [Unknown]
  - Blood glucose increased [Unknown]
  - Memory impairment [Unknown]

NARRATIVE: CASE EVENT DATE: 20151217
